FAERS Safety Report 12597537 (Version 1)
Quarter: 2016Q3

REPORT INFORMATION
  Report Type: Spontaneous
  Country: US (occurrence: US)
  Receive Date: 20160727
  Receipt Date: 20160727
  Transmission Date: 20161109
  Serious: No
  Sender: FDA-Public Use
  Company Number: US-PFIZER INC-2016325079

PATIENT

DRUGS (8)
  1. PHENTOLAMINE [Suspect]
     Active Substance: PHENTOLAMINE
     Dosage: UNK
  2. DICLOFENAC EPOLAMINE [Suspect]
     Active Substance: DICLOFENAC EPOLAMINE
     Dosage: UNK
  3. FENTANYL CITRATE. [Suspect]
     Active Substance: FENTANYL CITRATE
     Dosage: UNK
  4. LIDOCAINE HCL [Suspect]
     Active Substance: LIDOCAINE HYDROCHLORIDE
     Dosage: UNK
  5. METOCLOPRAMIDE HCL [Suspect]
     Active Substance: METOCLOPRAMIDE HYDROCHLORIDE
     Dosage: UNK
  6. SULFABENZAMIDE. [Suspect]
     Active Substance: SULFABENZAMIDE
     Dosage: UNK
  7. SULFATHIAZOLE [Suspect]
     Active Substance: SULFATHIAZOLE
     Dosage: UNK
  8. SODIUM [Suspect]
     Active Substance: SODIUM
     Dosage: UNK

REACTIONS (1)
  - Drug hypersensitivity [Unknown]
